FAERS Safety Report 9068629 (Version 1)
Quarter: 2013Q1

REPORT INFORMATION
  Report Type: Spontaneous
  Country: US (occurrence: None)
  Receive Date: 20130212
  Receipt Date: 20130212
  Transmission Date: 20140127
  Serious: No
  Sender: FDA-Public Use
  Company Number: None

PATIENT
  Age: 80 Year
  Sex: Male
  Weight: 120.2 kg

DRUGS (1)
  1. ANDROGEL [Suspect]
     Indication: HYPOGONADISM
     Dosage: ONE PACKET DAILY TOP
     Route: 061
     Dates: start: 20121222, end: 20130124

REACTIONS (4)
  - Blood testosterone increased [None]
  - Blood testosterone free increased [None]
  - Anxiety [None]
  - Libido increased [None]
